FAERS Safety Report 9328376 (Version 1)
Quarter: 2013Q2

REPORT INFORMATION
  Report Type: Spontaneous
  Country: US (occurrence: US)
  Receive Date: 20130604
  Receipt Date: 20130604
  Transmission Date: 20140414
  Serious: No
  Sender: FDA-Public Use
  Company Number: US-SANOFI-AVENTIS-2012SA049048

PATIENT
  Age: 48 Year
  Sex: Female

DRUGS (3)
  1. LANTUS [Suspect]
     Indication: DIABETES MELLITUS
     Dosage: 30 UNITS IN THE MORNING AND 30 UNITS IN THE NIGHT.
     Route: 058
  2. JANUMET [Suspect]
     Indication: PRODUCT USED FOR UNKNOWN INDICATION
     Dosage: 50/500 MG TWICE  DAY, 1 MORNING AND 1 NIGHT.
     Route: 065
  3. HUMALOG [Suspect]
     Indication: PRODUCT USED FOR UNKNOWN INDICATION
     Dosage: 15 UNITS BEFORE EACH MEAL
     Route: 065

REACTIONS (3)
  - Depression [Unknown]
  - Sensation of heaviness [Unknown]
  - Glycosylated haemoglobin increased [Unknown]
